FAERS Safety Report 8429177-8 (Version None)
Quarter: 2012Q2

REPORT INFORMATION
  Report Type: 
  Country: None (occurrence: None)
  Receive Date: 20120612
  Receipt Date: 20120607
  Transmission Date: 20120825
  Serious: Yes (Other)
  Sender: FDA-Public Use
  Company Number: CN-PFIZER INC-2012137730

PATIENT
  Age: 41 Year
  Sex: Female
  Weight: 50 kg

DRUGS (3)
  1. EPIRUBICIN HYDROCHLORIDE [Suspect]
     Indication: BREAST CANCER
     Dosage: 90 MG, 1X/DAY
     Route: 041
     Dates: start: 20100529, end: 20100529
  2. CYCLOPHOSPHAMIDE [Concomitant]
     Indication: BREAST CANCER
     Dosage: UNK
     Dates: start: 20100529, end: 20100529
  3. FLUOROURACIL [Concomitant]
     Indication: BREAST CANCER
     Dosage: UNK
     Dates: start: 20100529, end: 20100529

REACTIONS (1)
  - HEPATIC FUNCTION ABNORMAL [None]
